FAERS Safety Report 8160260-0 (Version None)
Quarter: 2012Q1

REPORT INFORMATION
  Report Type: 
  Country: None (occurrence: None)
  Receive Date: 20120223
  Receipt Date: 20120223
  Transmission Date: 20120608
  Serious: Yes (Hospitalization)
  Sender: FDA-Public Use
  Company Number: None

PATIENT
  Age: 58 Year
  Sex: Male
  Weight: 80.4 kg

DRUGS (2)
  1. ERLOTINIB HYDROCHLORIDE [Suspect]
     Indication: NON-SMALL CELL LUNG CANCER METASTATIC
     Dosage: 150MG
     Route: 048
     Dates: start: 20111214, end: 20120202
  2. CETUXIMAB [Concomitant]
     Indication: NON-SMALL CELL LUNG CANCER METASTATIC
     Dosage: 250MG/M2
     Route: 042
     Dates: start: 20111214, end: 20120125

REACTIONS (7)
  - ATELECTASIS [None]
  - PULMONARY EMBOLISM [None]
  - NEOPLASM PROGRESSION [None]
  - LUNG CONSOLIDATION [None]
  - PLEURAL EFFUSION [None]
  - LYMPHADENOPATHY [None]
  - NON-SMALL CELL LUNG CANCER METASTATIC [None]
